FAERS Safety Report 18263279 (Version 1)
Quarter: 2020Q3

REPORT INFORMATION
  Report Type: Spontaneous
  Country: CN (occurrence: CN)
  Receive Date: 20200914
  Receipt Date: 20200914
  Transmission Date: 20201103
  Serious: Yes (Hospitalization)
  Sender: FDA-Public Use
  Company Number: CN-SHIRE-CN202029273

PATIENT

DRUGS (1)
  1. HUMAN ALBUMIN [Suspect]
     Active Substance: ALBUMIN HUMAN
     Indication: INTRACRANIAL PRESSURE INCREASED
     Dosage: 10 GRAM, 2X/DAY:BID
     Route: 042
     Dates: start: 20200901, end: 20200902

REACTIONS (2)
  - Infusion related reaction [Recovering/Resolving]
  - Urticaria [Recovering/Resolving]

NARRATIVE: CASE EVENT DATE: 20200902
